FAERS Safety Report 13682461 (Version 1)
Quarter: 2017Q2

REPORT INFORMATION
  Report Type: Report from Study
  Country: US (occurrence: US)
  Receive Date: 20170623
  Receipt Date: 20170623
  Transmission Date: 20170830
  Serious: Yes (Death, Other)
  Sender: FDA-Public Use
  Company Number: US-BAYER-2017-114151

PATIENT
  Age: 62 Year
  Sex: Male

DRUGS (19)
  1. FENTANYL. [Concomitant]
     Active Substance: FENTANYL
  2. SPIRONOLACTONE. [Concomitant]
     Active Substance: SPIRONOLACTONE
  3. FUROSEMIDE. [Concomitant]
     Active Substance: FUROSEMIDE
  4. MEGESTROL [Concomitant]
     Active Substance: MEGESTROL
  5. AUGMENTIN [Concomitant]
     Active Substance: AMOXICILLIN\CLAVULANATE POTASSIUM
  6. LACTULOSE. [Concomitant]
     Active Substance: LACTULOSE
  7. HYDROCODONE W/ACETAMINOPHEN [Concomitant]
     Active Substance: ACETAMINOPHEN\HYDROCODONE BITARTRATE
  8. GENERLAC [Concomitant]
     Active Substance: LACTULOSE
  9. ONDASETRON [Concomitant]
     Active Substance: ONDANSETRON
  10. ESZOPICLONE. [Concomitant]
     Active Substance: ESZOPICLONE
  11. VALACICLOVIR [Concomitant]
     Active Substance: VALACYCLOVIR HYDROCHLORIDE
  12. ZOLPIDEM [Concomitant]
     Active Substance: ZOLPIDEM\ZOLPIDEM TARTRATE
  13. METHYLPREDNISOLONE. [Concomitant]
     Active Substance: METHYLPREDNISOLONE
  14. MOXIFLOXACIN. [Concomitant]
     Active Substance: MOXIFLOXACIN
  15. OXYCODONE [Concomitant]
     Active Substance: OXYCODONE
  16. STIVARGA [Suspect]
     Active Substance: REGORAFENIB
     Indication: COLON CANCER
     Dosage: 160 MG, QD (FOR 21/28 DAYS)
     Route: 048
  17. DIPHENOXYLATE/ATROPINE [ATROPINE SULFATE,DIPHENOXYLATE HYDROCHLORI [Concomitant]
  18. DRONABINOL. [Concomitant]
     Active Substance: DRONABINOL
  19. NEULASTA [Concomitant]
     Active Substance: PEGFILGRASTIM

REACTIONS (3)
  - Adverse drug reaction [Unknown]
  - Adverse event [None]
  - Death [Fatal]

NARRATIVE: CASE EVENT DATE: 20170620
